FAERS Safety Report 5868621-7 (Version None)
Quarter: 2008Q3

REPORT INFORMATION
  Report Type: 
  Country: None (occurrence: None)
  Receive Date: 20080828
  Receipt Date: 20080813
  Transmission Date: 20090109
  Serious: Yes (Hospitalization, Other)
  Sender: FDA-Public Use
  Company Number: 032650

PATIENT
  Age: 84 Year
  Sex: Female

DRUGS (10)
  1. ATENOLOL [Suspect]
     Indication: HYPERTENSION
  2. HYDROCHLOROTHIAZIDE(HYDROCHLOROTHIAZIDE) TABLET, 25MG [Suspect]
     Indication: HYPERTENSION
  3. SPIRONOLACTONE [Suspect]
     Indication: HYPERTENSION
     Dosage: 25 MG, QD,; 50 MG,; 25 MG,
  4. LISINOPRIL [Suspect]
     Indication: HYPERTENSION
  5. NIFEDIPINE [Suspect]
     Indication: HYPERTENSION
     Dosage: QD,
  6. FUROSEMIDE [Suspect]
     Indication: HYPERTENSION
     Dosage: 10 MG, QD,
  7. AMLODIPINE [Suspect]
     Indication: HYPERTENSION
     Dosage: 2.5 MG,
  8. CLONIDINE [Suspect]
     Indication: HYPERTENSION
  9. FELODIPINE [Suspect]
     Indication: HYPERTENSION
  10. DILTIAZEM [Suspect]
     Indication: HYPERTENSION
     Dosage: 120 MG, QD,

REACTIONS (17)
  - AORTIC STENOSIS [None]
  - BALANCE DISORDER [None]
  - BLOOD PRESSURE SYSTOLIC INCREASED [None]
  - BLOOD UREA INCREASED [None]
  - BRADYCARDIA [None]
  - CARDIAC MURMUR [None]
  - COUGH [None]
  - DIZZINESS [None]
  - DRUG INTOLERANCE [None]
  - DRY MOUTH [None]
  - FATIGUE [None]
  - HYPONATRAEMIA [None]
  - INAPPROPRIATE ANTIDIURETIC HORMONE SECRETION [None]
  - LEFT VENTRICULAR HYPERTROPHY [None]
  - OEDEMA [None]
  - OEDEMA PERIPHERAL [None]
  - SYNCOPE [None]
